FAERS Safety Report 8050924-1 (Version None)
Quarter: 2012Q1

REPORT INFORMATION
  Report Type: 
  Country: None (occurrence: None)
  Receive Date: 20120117
  Receipt Date: 20120110
  Transmission Date: 20120608
  Serious: Yes (Hospitalization, Other)
  Sender: FDA-Public Use
  Company Number: PHEH2011US06574

PATIENT
  Sex: Male

DRUGS (13)
  1. METOPROLOL TARTRATE [Concomitant]
     Dosage: 25 MG, UNK
  2. ZYPREXA [Concomitant]
     Dosage: 2.5 MG, UNK
  3. CITALOPRAM HYDROBROMIDE [Concomitant]
     Indication: DEPRESSION
     Dosage: 20 MG, UNK
  4. EXELON [Suspect]
     Indication: DEMENTIA
     Dosage: 9.5 MG, 1 PATCH PER DAY
     Route: 062
     Dates: start: 20100701
  5. LISINOPRIL [Concomitant]
     Dosage: 40 MG, BID
  6. NOVOLIN 70/30 [Concomitant]
     Indication: DIABETES MELLITUS
     Dosage: 70-30 UNITS 2XDAY
  7. LACTULOSE [Concomitant]
     Dosage: 1 TSP, BID
  8. CELEXA [Concomitant]
     Indication: DEPRESSION
     Dosage: 30 MG, QHS
     Route: 048
  9. ALPRAZOLAM [Concomitant]
     Indication: ANXIETY
     Dosage: 0.5 MG, UNK
     Route: 048
  10. RANITIDINE [Concomitant]
     Dosage: 150 MG, BID
  11. XANAX [Concomitant]
     Dosage: 0.5 MG, TID
  12. TRAZODONE HCL [Concomitant]
     Indication: INSOMNIA
     Dosage: 100 MG, QHS
     Route: 048
  13. SPIRONLATT [Concomitant]

REACTIONS (6)
  - HYPOTENSION [None]
  - DIABETES MELLITUS INADEQUATE CONTROL [None]
  - OEDEMA PERIPHERAL [None]
  - HEPATIC CIRRHOSIS [None]
  - POLLAKIURIA [None]
  - FALL [None]
